FAERS Safety Report 16219086 (Version 1)
Quarter: 2019Q2

REPORT INFORMATION
  Report Type: Spontaneous
  Country: FI (occurrence: FI)
  Receive Date: 20190419
  Receipt Date: 20190419
  Transmission Date: 20190711
  Serious: Yes (Other)
  Sender: FDA-Public Use
  Company Number: FI-ANIPHARMA-2019-FI-000003

PATIENT
  Age: 62 Year
  Sex: Female

DRUGS (4)
  1. CANDESARTAN CILEXETIL. [Suspect]
     Active Substance: CANDESARTAN CILEXETIL
     Indication: HYPERTENSION
     Dosage: UNK UNK, EVERY DAY
     Route: 048
     Dates: start: 201808
  2. MELATONIN [Suspect]
     Active Substance: MELATONIN
     Dosage: UNK
     Route: 048
     Dates: start: 20190121, end: 20190121
  3. ORIDIP (LERCANIDIPINE HYDROCHLORIDE) [Suspect]
     Active Substance: LERCANIDIPINE HYDROCHLORIDE
     Dosage: UNK UNK, EVERY DAY
     Route: 048
  4. CANDESARTAN CILEXETIL AND HYDROCHLOROTHIAZIDE [Suspect]
     Active Substance: CANDESARTAN CILEXETIL\HYDROCHLOROTHIAZIDE
     Indication: HYPERTENSION
     Dosage: UNK UNK, EVERY DAY
     Route: 048

REACTIONS (5)
  - Dermatitis [Recovered/Resolved]
  - Drug interaction [Recovered/Resolved]
  - Headache [Unknown]
  - Blood pressure increased [Recovered/Resolved]
  - Seizure [Unknown]
